FAERS Safety Report 7342308-6 (Version None)
Quarter: 2011Q1

REPORT INFORMATION
  Report Type: 
  Country: None (occurrence: None)
  Receive Date: 20110310
  Receipt Date: 20110304
  Transmission Date: 20110831
  Serious: No
  Sender: FDA-Public Use
  Company Number: US-BIOGENIDEC-2011BI006130

PATIENT
  Sex: Female

DRUGS (3)
  1. AVONEX [Concomitant]
     Indication: MULTIPLE SCLEROSIS
     Route: 030
     Dates: start: 20070901
  2. TYSABRI [Suspect]
     Indication: MULTIPLE SCLEROSIS
     Route: 042
     Dates: start: 20070927, end: 20100301
  3. TYSABRI [Suspect]
     Route: 042
     Dates: start: 20100601

REACTIONS (4)
  - FATIGUE [None]
  - HEADACHE [None]
  - DIZZINESS [None]
  - MULTIPLE SCLEROSIS RELAPSE [None]
